FAERS Safety Report 8317003 (Version 4)
Quarter: 2013Q2

REPORT INFORMATION
  Report Type: Report from Study
  Country: US (occurrence: US)
  Receive Date: 20111230
  Receipt Date: 20130515
  Transmission Date: 20140414
  Serious: Yes (Hospitalization, Other)
  Sender: FDA-Public Use
  Company Number: US-ROCHE-GNE320671

PATIENT
  Age: 0 Year
  Sex: Male
  Weight: 2.68 kg

DRUGS (4)
  1. OMALIZUMAB [Suspect]
     Indication: ASTHMA
     Dosage: 150 MG, Q4W
     Route: 064
     Dates: start: 20100320
  2. OMALIZUMAB [Suspect]
     Dosage: 150 MG, Q4W
     Route: 063
  3. OMALIZUMAB [Suspect]
     Route: 065
     Dates: start: 20110917
  4. HEPATITIS B VACCINE [Concomitant]

REACTIONS (8)
  - Premature baby [Unknown]
  - Pyrexia [Unknown]
  - Unevaluable event [Unknown]
  - Herpangina [Unknown]
  - Upper respiratory tract infection [Unknown]
  - Otitis media [Unknown]
  - Nasopharyngitis [Unknown]
  - Cough [Unknown]
